FAERS Safety Report 8750112 (Version 2)
Quarter: 2012Q4

REPORT INFORMATION
  Report Type: Spontaneous
  Country: US (occurrence: None)
  Receive Date: 20120809
  Receipt Date: 20120828
  Transmission Date: 20130627
  Serious: Yes (Hospitalization, Disabling, Other)
  Sender: FDA-Public Use
  Company Number: HA12-224-AE

PATIENT
  Age: 73 Year
  Sex: Male
  Weight: 68.04 kg

DRUGS (5)
  1. SULFAMETHOXAZOLE AND TRIMETHOPRIM [Suspect]
     Indication: PAIN IN EXTREMITY
     Dosage: 1 TABLET Q12E, ORAL
     Route: 048
     Dates: start: 20110311, end: 20110315
  2. COUMADIN [Concomitant]
  3. CHOLESTEROL MEDICINE [Concomitant]
  4. HIGH BLOOD PRESSURE MEDICATION [Concomitant]
  5. PRILOSEC [Concomitant]

REACTIONS (3)
  - Leg amputation [None]
  - Stevens-Johnson syndrome [None]
  - Weight decreased [None]
